FAERS Safety Report 8259859-2 (Version None)
Quarter: 2012Q2

REPORT INFORMATION
  Report Type: 
  Country: None (occurrence: None)
  Receive Date: 20120404
  Receipt Date: 20120326
  Transmission Date: 20120825
  Serious: Yes (Other)
  Sender: FDA-Public Use
  Company Number: US-GLAXOSMITHKLINE-A0969194A

PATIENT
  Sex: Female

DRUGS (2)
  1. NEBULIZER [Concomitant]
  2. VENTOLIN [Suspect]
     Indication: ASTHMA

REACTIONS (4)
  - ASTHMA [None]
  - MALAISE [None]
  - DYSPNOEA [None]
  - DRUG INEFFECTIVE [None]
